FAERS Safety Report 6250614-1 (Version None)
Quarter: 2009Q2

REPORT INFORMATION
  Report Type: 
  Country: None (occurrence: None)
  Receive Date: 20090626
  Receipt Date: 20090617
  Transmission Date: 20091009
  Serious: Yes (Other)
  Sender: FDA-Public Use
  Company Number: 2009US002465

PATIENT
  Age: 13 Year
  Sex: Female

DRUGS (1)
  1. AMBISOME [Suspect]
     Indication: FUNGAL INFECTION

REACTIONS (1)
  - LEUKOENCEPHALOPATHY [None]
